FAERS Safety Report 8061231-5 (Version None)
Quarter: 2012Q1

REPORT INFORMATION
  Report Type: 
  Country: None (occurrence: None)
  Receive Date: 20120120
  Receipt Date: 20110729
  Transmission Date: 20120608
  Serious: No
  Sender: FDA-Public Use
  Company Number: US-ALLERGAN-1109746US

PATIENT
  Age: 81 Year
  Sex: Male

DRUGS (2)
  1. RESTASIS [Suspect]
     Indication: DRY EYE
     Dosage: 1 GTT, BID
     Route: 047
     Dates: start: 20110710, end: 20110716
  2. REFRESH PLUS LUBRICANT [Concomitant]
     Indication: FOREIGN BODY SENSATION IN EYES
     Dosage: 1 GTT, Q1HR
     Route: 047

REACTIONS (3)
  - LETHARGY [None]
  - DIZZINESS [None]
  - FOREIGN BODY SENSATION IN EYES [None]
